FAERS Safety Report 6262129-5 (Version None)
Quarter: 2009Q3

REPORT INFORMATION
  Report Type: 
  Country: None (occurrence: None)
  Receive Date: 20090707
  Receipt Date: 20090707
  Transmission Date: 20100115
  Serious: Yes (Life-Threatening, Disabling, Other)
  Sender: FDA-Public Use
  Company Number: None

PATIENT
  Sex: Female
  Weight: 83.9154 kg

DRUGS (3)
  1. ULTRAM [Suspect]
     Indication: GINGIVAL DISORDER
     Dosage: 50 MG. ONE PER DAY
     Dates: start: 20080301, end: 20090320
  2. ULTRAM [Suspect]
     Indication: NEURALGIA
     Dosage: 50 MG. ONE PER DAY
     Dates: start: 20080301, end: 20090320
  3. ULTRAM [Suspect]
     Indication: TOOTH DISORDER
     Dosage: 50 MG. ONE PER DAY
     Dates: start: 20080301, end: 20090320

REACTIONS (8)
  - COGNITIVE DISORDER [None]
  - DEPRESSION [None]
  - DISTURBANCE IN ATTENTION [None]
  - FEELING ABNORMAL [None]
  - HYPERHIDROSIS [None]
  - INSOMNIA [None]
  - MENTAL IMPAIRMENT [None]
  - SUICIDAL IDEATION [None]
